FAERS Safety Report 4814958-X (Version None)
Quarter: 2005Q4

REPORT INFORMATION
  Report Type: 
  Country: None (occurrence: None)
  Receive Date: 20051028
  Receipt Date: 20051021
  Transmission Date: 20060501
  Serious: Yes (Hospitalization)
  Sender: FDA-Public Use
  Company Number: US-BRISTOL-MYERS SQUIBB COMPANY-13154901

PATIENT

DRUGS (3)
  1. CETUXIMAB [Suspect]
     Indication: NEOPLASM MALIGNANT
     Dates: start: 20051017, end: 20051017
  2. CISPLATIN [Suspect]
     Indication: NEOPLASM MALIGNANT
     Dates: start: 20051017, end: 20051017
  3. RADIATION THERAPY [Suspect]
     Indication: NEOPLASM MALIGNANT
     Dates: start: 20051020, end: 20051020

REACTIONS (5)
  - BLOOD CALCIUM DECREASED [None]
  - BLOOD MAGNESIUM DECREASED [None]
  - DEHYDRATION [None]
  - RASH [None]
  - WEIGHT DECREASED [None]
